FAERS Safety Report 18800041 (Version 2)
Quarter: 2021Q1

REPORT INFORMATION
  Report Type: Spontaneous
  Country: IE (occurrence: IE)
  Receive Date: 20210128
  Receipt Date: 20210203
  Transmission Date: 20210419
  Serious: Yes (Hospitalization)
  Sender: FDA-Public Use
  Company Number: IE-MYLANLABS-2021M1004736

PATIENT
  Age: 56 Year
  Sex: Female

DRUGS (1)
  1. CLOZARIL [Suspect]
     Active Substance: CLOZAPINE
     Indication: SCHIZOPHRENIA
     Dosage: UNK
     Route: 048
     Dates: start: 20210107, end: 20210121

REACTIONS (5)
  - Dyspnoea [Unknown]
  - Cough [Unknown]
  - Pericarditis [Unknown]
  - Troponin increased [Unknown]
  - Eosinophilia [Unknown]

NARRATIVE: CASE EVENT DATE: 202101
